FAERS Safety Report 24460478 (Version 1)
Quarter: 2024Q4

REPORT INFORMATION
  Report Type: Report from Study
  Country: TR (occurrence: TR)
  Receive Date: 20241018
  Receipt Date: 20241018
  Transmission Date: 20250115
  Serious: No
  Sender: ROCHE
  Company Number: TR-ROCHE-3571839

PATIENT

DRUGS (3)
  1. RITUXIMAB [Interacting]
     Active Substance: RITUXIMAB
     Indication: Neuromyelitis optica spectrum disorder
     Route: 065
  2. COVID-19 VACCINE NOS [Interacting]
     Active Substance: COVID-19 VACCINE
     Indication: Prophylaxis
     Route: 065
  3. TOZINAMERAN [Interacting]
     Active Substance: TOZINAMERAN
     Indication: Prophylaxis
     Route: 065

REACTIONS (2)
  - Vaccination failure [Unknown]
  - Vaccine interaction [Unknown]
